FAERS Safety Report 16517597 (Version 1)
Quarter: 2019Q3

REPORT INFORMATION
  Report Type: Spontaneous
  Country: US (occurrence: US)
  Receive Date: 20190702
  Receipt Date: 20190702
  Transmission Date: 20191004
  Serious: Yes (Death)
  Sender: FDA-Public Use
  Company Number: None

PATIENT
  Age: 82 Year
  Sex: Male
  Weight: 126 kg

DRUGS (22)
  1. PREDNISONE. [Concomitant]
     Active Substance: PREDNISONE
     Dates: start: 20190626, end: 20190627
  2. METHOCARBAMOL. [Concomitant]
     Active Substance: METHOCARBAMOL
     Dates: start: 20190626, end: 20190627
  3. NORCO [Concomitant]
     Active Substance: ACETAMINOPHEN\HYDROCODONE BITARTRATE
     Dates: start: 20190626, end: 20190627
  4. XARELTO [Concomitant]
     Active Substance: RIVAROXABAN
     Dates: start: 20190626, end: 20190627
  5. LEVOTHYROXINE. [Concomitant]
     Active Substance: LEVOTHYROXINE
     Dates: start: 20190626, end: 20190627
  6. DUREZOL [Concomitant]
     Active Substance: DIFLUPREDNATE
     Dates: start: 20190626, end: 20190627
  7. BESIVANCE [Concomitant]
     Active Substance: BESIFLOXACIN
     Dates: start: 20190626, end: 20190627
  8. FUROSEMIDE. [Concomitant]
     Active Substance: FUROSEMIDE
     Dates: start: 20190626, end: 20190627
  9. MELOXICAM. [Concomitant]
     Active Substance: MELOXICAM
     Dates: start: 20190626, end: 20190627
  10. ONDANSETRON [Concomitant]
     Active Substance: ONDANSETRON
     Dates: start: 20190626, end: 20190627
  11. BICALUTAMIDE. [Concomitant]
     Active Substance: BICALUTAMIDE
     Dates: start: 20190626, end: 20190627
  12. ATORVASTATIN [Concomitant]
     Active Substance: ATORVASTATIN
     Dates: start: 20190626, end: 20190627
  13. MULTIVITAMIN [Concomitant]
     Active Substance: VITAMINS
     Dates: start: 20190626, end: 20190627
  14. ILEVO [Concomitant]
     Dates: start: 20190626, end: 20190627
  15. POTASSIUM CHLORIDE ER [Concomitant]
     Active Substance: POTASSIUM CHLORIDE
     Dates: start: 20190626, end: 20190627
  16. CARVEDILOL. [Concomitant]
     Active Substance: CARVEDILOL
     Dates: start: 20190626, end: 20190627
  17. ASPIRIN. [Concomitant]
     Active Substance: ASPIRIN
     Dates: start: 20190626, end: 20190627
  18. PROAIR HFA [Concomitant]
     Active Substance: ALBUTEROL SULFATE
     Dates: start: 20190626, end: 20190627
  19. ABIRATERONE ACETATE. [Suspect]
     Active Substance: ABIRATERONE ACETATE
     Indication: PROSTATE CANCER
     Route: 048
     Dates: start: 20171102, end: 20190627
  20. OSTEO BI FLEX [Concomitant]
     Dates: start: 20190626, end: 20190627
  21. COENZYME Q10 [Concomitant]
     Active Substance: UBIDECARENONE
     Dates: start: 20190626, end: 20190627
  22. ELIGARD [Concomitant]
     Active Substance: LEUPROLIDE ACETATE
     Dates: start: 20190626, end: 20190627

REACTIONS (1)
  - Death [None]

NARRATIVE: CASE EVENT DATE: 20190627
